FAERS Safety Report 23518230 (Version 1)
Quarter: 2024Q1

REPORT INFORMATION
  Report Type: Report from Study
  Country: US (occurrence: US)
  Receive Date: 20240213
  Receipt Date: 20240213
  Transmission Date: 20240410
  Serious: Yes (Other)
  Sender: FDA-Public Use
  Company Number: US-OTSUKA-2024_003458

PATIENT
  Sex: Female
  Weight: 79.38 kg

DRUGS (1)
  1. ARIPIPRAZOLE [Suspect]
     Active Substance: ARIPIPRAZOLE
     Indication: Schizoaffective disorder
     Dosage: 400 MG
     Route: 065

REACTIONS (6)
  - Hallucination [Unknown]
  - Crying [Unknown]
  - Depression [Unknown]
  - Hypertension [Unknown]
  - Somnolence [Unknown]
  - Product use in unapproved indication [Unknown]
